FAERS Safety Report 21718458 (Version 1)
Quarter: 2022Q4

REPORT INFORMATION
  Report Type: Spontaneous
  Country: US (occurrence: US)
  Receive Date: 20221212
  Receipt Date: 20221212
  Transmission Date: 20230112
  Serious: No
  Sender: FDA-Public Use
  Company Number: US-JNJFOC-20200241849

PATIENT
  Sex: Female
  Weight: 90.800 kg

DRUGS (1)
  1. IMODIUM MULTI-SYMPTOM RELIEF [Suspect]
     Active Substance: DIMETHICONE\LOPERAMIDE HYDROCHLORIDE
     Indication: Diarrhoea
     Dosage: 1 ONCE A DAY; DRUG WAS STARTED SOMETIME AFTER MARCH
     Route: 048

REACTIONS (2)
  - Incorrect product administration duration [Unknown]
  - Product size issue [Unknown]
